FAERS Safety Report 4977200-5 (Version None)
Quarter: 2006Q2

REPORT INFORMATION
  Report Type: 
  Country: None (occurrence: None)
  Receive Date: 20060419
  Receipt Date: 20050929
  Transmission Date: 20061013
  Serious: Yes (Hospitalization)
  Sender: FDA-Public Use
  Company Number: US-MERCK-0510USA00644

PATIENT
  Age: 70 Year
  Sex: Female
  Weight: 84 kg

DRUGS (2)
  1. VIOXX [Suspect]
     Indication: OSTEOARTHRITIS
     Route: 048
     Dates: start: 20000513, end: 20020914
  2. VIOXX [Suspect]
     Indication: ARTHRITIS
     Route: 048
     Dates: start: 20000513, end: 20020914

REACTIONS (21)
  - ANXIETY [None]
  - ANXIETY DISORDER [None]
  - ATELECTASIS [None]
  - BACK PAIN [None]
  - BALANCE DISORDER [None]
  - BLOOD CHOLESTEROL INCREASED [None]
  - BRADYCARDIA [None]
  - CATARACT [None]
  - CEREBROVASCULAR ACCIDENT [None]
  - CONTUSION [None]
  - DEEP VEIN THROMBOSIS [None]
  - DEPRESSION [None]
  - DIZZINESS [None]
  - HIP SWELLING [None]
  - HYPERLIPIDAEMIA [None]
  - LOSS OF CONSCIOUSNESS [None]
  - LOW DENSITY LIPOPROTEIN INCREASED [None]
  - LUNG INFILTRATION [None]
  - MENINGIOMA [None]
  - SUPRAVENTRICULAR EXTRASYSTOLES [None]
  - TREMOR [None]
